FAERS Safety Report 8779505 (Version 14)
Quarter: 2019Q3

REPORT INFORMATION
  Report Type: Spontaneous
  Country: US (occurrence: US)
  Receive Date: 20120917
  Receipt Date: 20190730
  Transmission Date: 20191005
  Serious: Yes (Hospitalization, Other)
  Sender: FDA-Public Use
  Company Number: US-ASTRAZENECA-2012SE70431

PATIENT
  Age: 62 Year
  Sex: Female
  Weight: 58.1 kg

DRUGS (36)
  1. SYMBICORT [Suspect]
     Active Substance: BUDESONIDE\FORMOTEROL FUMARATE DIHYDRATE
     Indication: EMPHYSEMA
     Dosage: 160/4.5 MCG TWO PUFF TWO TIMES A DAY
     Route: 055
     Dates: start: 201812
  2. PANTOPRAZOLE [Concomitant]
     Active Substance: PANTOPRAZOLE
     Indication: GASTROOESOPHAGEAL REFLUX DISEASE
     Route: 048
     Dates: start: 2010
  3. ALBUTEROL. [Concomitant]
     Active Substance: ALBUTEROL
     Indication: EMPHYSEMA
     Dosage: 2.5MG/2ML TWO TO FOUR TIMES A DAY
     Route: 055
  4. ALBUTEROL SULFATE AND IPRATROPIUM [Concomitant]
     Indication: EMPHYSEMA
     Route: 055
  5. XANAX [Concomitant]
     Active Substance: ALPRAZOLAM
     Indication: ANXIETY
     Route: 048
  6. VITAMIN B NOS [Concomitant]
     Active Substance: VITAMIN B
     Indication: HYPOVITAMINOSIS
     Route: 048
  7. BABY ASPRIN [Concomitant]
     Active Substance: ASPIRIN
     Dosage: EVERY OTHER DAY
     Route: 048
  8. NEXIUM [Suspect]
     Active Substance: ESOMEPRAZOLE MAGNESIUM
     Indication: GASTROOESOPHAGEAL REFLUX DISEASE
     Route: 048
     Dates: start: 2003
  9. SYMBICORT [Suspect]
     Active Substance: BUDESONIDE\FORMOTEROL FUMARATE DIHYDRATE
     Indication: EMPHYSEMA
     Dosage: 160/4.5 MCG TWO PUFF TWO TIMES A DAY
     Route: 055
     Dates: start: 201712
  10. OMEPRAZOLE. [Suspect]
     Active Substance: OMEPRAZOLE
     Indication: GASTROOESOPHAGEAL REFLUX DISEASE
     Dosage: 40MG TWICE A DAY
     Route: 048
  11. BUDESONIDE. [Suspect]
     Active Substance: BUDESONIDE
     Dosage: 0.5ML/2ML TWICE A DAY
     Route: 055
     Dates: start: 2004
  12. SYMBICORT [Suspect]
     Active Substance: BUDESONIDE\FORMOTEROL FUMARATE DIHYDRATE
     Indication: CHRONIC OBSTRUCTIVE PULMONARY DISEASE
     Dosage: 160/4.5 MCG TWO PUFF TWO TIMES A DAY
     Route: 055
     Dates: start: 201712
  13. EPLERENONE. [Concomitant]
     Active Substance: EPLERENONE
     Indication: BLOOD PRESSURE ABNORMAL
     Route: 048
  14. ELIQUIS [Concomitant]
     Active Substance: APIXABAN
     Indication: THROMBOSIS
  15. TYLENOL [Concomitant]
     Active Substance: ACETAMINOPHEN
  16. IPRATROPIUM [Concomitant]
     Active Substance: IPRATROPIUM
  17. AMLODIPINE BESYLATE. [Concomitant]
     Active Substance: AMLODIPINE BESYLATE
     Indication: BLOOD PRESSURE ABNORMAL
     Route: 048
  18. GENERIC CARDIZAM [Concomitant]
     Indication: BLOOD PRESSURE ABNORMAL
     Route: 048
  19. PREDNISONE. [Concomitant]
     Active Substance: PREDNISONE
     Indication: EMPHYSEMA
     Dosage: AS REQUIRED
     Route: 048
  20. VITAMIN D [Concomitant]
     Active Substance: VITAMIN D NOS
     Indication: HYPOVITAMINOSIS
     Route: 048
  21. SYMBICORT [Suspect]
     Active Substance: BUDESONIDE\FORMOTEROL FUMARATE DIHYDRATE
     Indication: CHRONIC OBSTRUCTIVE PULMONARY DISEASE
     Route: 055
     Dates: end: 20180912
  22. PRAVASTATIN. [Concomitant]
     Active Substance: PRAVASTATIN
     Indication: BLOOD CHOLESTEROL ABNORMAL
     Route: 048
  23. LEVOCETRIZINE HCL [Concomitant]
     Indication: MULTIPLE ALLERGIES
     Route: 048
  24. FORADIL [Concomitant]
     Active Substance: FORMOTEROL FUMARATE
     Indication: EMPHYSEMA
     Dosage: 1 PUFF TWO TIMES A DAY
     Route: 055
  25. THEOPHYLLINE [Concomitant]
     Active Substance: THEOPHYLLINE ANHYDROUS
     Indication: EMPHYSEMA
     Route: 048
  26. PEPCID [Concomitant]
     Active Substance: FAMOTIDINE
     Indication: ABDOMINAL DISCOMFORT
     Route: 048
  27. INSPRA [Concomitant]
     Active Substance: EPLERENONE
     Route: 048
  28. NEXIUM [Suspect]
     Active Substance: ESOMEPRAZOLE MAGNESIUM
     Indication: GASTROOESOPHAGEAL REFLUX DISEASE
     Route: 048
     Dates: start: 20120901
  29. OMEPRAZOLE. [Suspect]
     Active Substance: OMEPRAZOLE
     Indication: GASTROOESOPHAGEAL REFLUX DISEASE
     Route: 048
     Dates: start: 20120901
  30. SYMBICORT [Suspect]
     Active Substance: BUDESONIDE\FORMOTEROL FUMARATE DIHYDRATE
     Indication: EMPHYSEMA
     Route: 055
     Dates: end: 20180912
  31. SYMBICORT [Suspect]
     Active Substance: BUDESONIDE\FORMOTEROL FUMARATE DIHYDRATE
     Indication: CHRONIC OBSTRUCTIVE PULMONARY DISEASE
     Dosage: 160/4.5 MCG TWO PUFF TWO TIMES A DAY
     Route: 055
     Dates: start: 201812
  32. DALIRESP [Suspect]
     Active Substance: ROFLUMILAST
     Indication: EMPHYSEMA
     Dosage: 250.0UG UNKNOWN
     Route: 048
  33. SPIRIVA [Concomitant]
     Active Substance: TIOTROPIUM BROMIDE MONOHYDRATE
     Indication: EMPHYSEMA
     Dosage: 1 PUFF DAILY
     Route: 055
  34. XANAX [Concomitant]
     Active Substance: ALPRAZOLAM
     Indication: NERVOUSNESS
     Route: 048
  35. ANORO ELLIPTA [Concomitant]
     Active Substance: UMECLIDINIUM BROMIDE\VILANTEROL TRIFENATATE
  36. ADVAIR HFA [Concomitant]
     Active Substance: FLUTICASONE PROPIONATE\SALMETEROL XINAFOATE

REACTIONS (35)
  - Memory impairment [Unknown]
  - Lung disorder [Unknown]
  - Oropharyngeal pain [Unknown]
  - Lung neoplasm malignant [Unknown]
  - Rectal haemorrhage [Recovered/Resolved]
  - Diverticulitis [Unknown]
  - Eye haemorrhage [Not Recovered/Not Resolved]
  - Pain in extremity [Unknown]
  - Dysphonia [Unknown]
  - Inability to afford medication [Unknown]
  - Neoplasm malignant [Unknown]
  - Depressed mood [Unknown]
  - Drug ineffective [Unknown]
  - Colitis [Recovered/Resolved with Sequelae]
  - Visual impairment [Unknown]
  - Emphysema [Unknown]
  - Skin mass [Unknown]
  - Dyspnoea [Not Recovered/Not Resolved]
  - Hernia [Unknown]
  - Thrombosis [Unknown]
  - Device issue [Unknown]
  - Gastrooesophageal reflux disease [Recovering/Resolving]
  - Condition aggravated [Not Recovered/Not Resolved]
  - Nervousness [Not Recovered/Not Resolved]
  - Angiopathy [Unknown]
  - Device malfunction [Not Recovered/Not Resolved]
  - Chronic obstructive pulmonary disease [Unknown]
  - Back pain [Unknown]
  - Incorrect dosage administered [Not Recovered/Not Resolved]
  - Off label use of device [Unknown]
  - Body height decreased [Not Recovered/Not Resolved]
  - Abdominal discomfort [Unknown]
  - Intentional product use issue [Unknown]
  - Intentional device misuse [Not Recovered/Not Resolved]
  - Dyspnoea [Unknown]

NARRATIVE: CASE EVENT DATE: 2003
